FAERS Safety Report 4717723-7 (Version None)
Quarter: 2005Q3

REPORT INFORMATION
  Report Type: 
  Country: None (occurrence: None)
  Receive Date: 20050713
  Receipt Date: 20050426
  Transmission Date: 20060218
  Serious: Yes (Other)
  Sender: FDA-Public Use
  Company Number: HQWYE502704MAY05

PATIENT
  Age: 75 Year
  Sex: Male
  Weight: 79.45 kg

DRUGS (5)
  1. ALAVERT [Suspect]
     Indication: HYPERSENSITIVITY
     Dosage: 1 TABLET DAILY, ORAL
     Route: 048
     Dates: start: 20050401
  2. ZYRTEC [Concomitant]
  3. ZOCOR [Concomitant]
  4. FLOMAX [Concomitant]
  5. ASPIRIN [Concomitant]

REACTIONS (1)
  - EAR DISCOMFORT [None]
